FAERS Safety Report 23079318 (Version 2)
Quarter: 2024Q1

REPORT INFORMATION
  Report Type: Spontaneous
  Country: US (occurrence: US)
  Receive Date: 20231018
  Receipt Date: 20240102
  Transmission Date: 20240410
  Serious: Yes (Other)
  Sender: FDA-Public Use
  Company Number: US-PFIZER INC-202300327733

PATIENT
  Age: 61 Year
  Sex: Female

DRUGS (8)
  1. IBRANCE [Suspect]
     Active Substance: PALBOCICLIB
     Dosage: 125 MG, CYCLIC (ONCE DAILY, FOR 21 DAYS ON AND 7 DAYS OFF)
     Dates: start: 20230915, end: 202310
  2. IBRANCE [Suspect]
     Active Substance: PALBOCICLIB
     Dosage: 100 MG, CYCLIC, (DAILY X21 DAYS Q (EVERY) 28 DAYS)
     Route: 048
     Dates: start: 2023
  3. ACETAMINOPHEN\HYDROCODONE [Concomitant]
     Active Substance: ACETAMINOPHEN\HYDROCODONE
     Dosage: UNK
     Route: 048
  4. LETROZOLE [Concomitant]
     Active Substance: LETROZOLE
     Dosage: 2.5 MG
     Route: 048
  5. LISINOPRIL AND HYDROCHLOROTHIAZIDE [Concomitant]
     Active Substance: HYDROCHLOROTHIAZIDE\LISINOPRIL
     Dosage: UNK
     Route: 048
  6. VITAMIN D3 [Concomitant]
     Active Substance: CHOLECALCIFEROL
     Dosage: 25 UG
     Route: 048
  7. VITAMIN E NATURAL [TOCOPHEROL] [Concomitant]
     Dosage: UNK, (VITAMIN E NATURAL ORAL CAPSULE 6)
     Route: 048
  8. CALCIUM PLUS [Concomitant]
     Dosage: UNK
     Route: 048

REACTIONS (2)
  - Tooth disorder [Unknown]
  - Full blood count decreased [Recovered/Resolved]

NARRATIVE: CASE EVENT DATE: 20230919
